FAERS Safety Report 6626049-6 (Version None)
Quarter: 2010Q1

REPORT INFORMATION
  Report Type: 
  Country: None (occurrence: None)
  Receive Date: 20100310
  Receipt Date: 20100301
  Transmission Date: 20100710
  Serious: Yes (Death, Hospitalization)
  Sender: FDA-Public Use
  Company Number: A0764892A

PATIENT
  Sex: Male
  Weight: 120.5 kg

DRUGS (21)
  1. ADVAIR DISKUS 100/50 [Suspect]
     Indication: ASTHMA
     Dosage: 1PUFF TWICE PER DAY
     Route: 055
  2. SEREVENT [Suspect]
     Indication: DRUG USE FOR UNKNOWN INDICATION
     Dosage: 1PUFF TWICE PER DAY
     Route: 055
  3. SPIRIVA [Concomitant]
  4. NASACORT [Concomitant]
  5. XOPENEX [Concomitant]
  6. PULMICORT [Concomitant]
  7. SINGULAIR [Concomitant]
  8. THEOPHYLLINE [Concomitant]
  9. NEURONTIN [Concomitant]
  10. COUMADIN [Concomitant]
     Indication: ATRIAL FIBRILLATION
  11. DIGOXIN [Concomitant]
  12. PREDNISONE [Concomitant]
  13. TRAZODONE HCL [Concomitant]
  14. ZESTRIL [Concomitant]
  15. LIPITOR [Concomitant]
  16. FLEXERIL [Concomitant]
  17. AMBIEN [Concomitant]
  18. ALBUTEROL [Concomitant]
  19. GLYBURIDE [Concomitant]
  20. LOVENOX [Concomitant]
  21. FLOVENT [Concomitant]

REACTIONS (4)
  - ARRHYTHMIA [None]
  - CARDIAC FAILURE CONGESTIVE [None]
  - CHRONIC OBSTRUCTIVE PULMONARY DISEASE [None]
  - DIASTOLIC DYSFUNCTION [None]
